FAERS Safety Report 8831083 (Version 1)
Quarter: 2012Q4

REPORT INFORMATION
  Report Type: Report from Study
  Country: KR (occurrence: KR)
  Receive Date: 20121008
  Receipt Date: 20121008
  Transmission Date: 20130627
  Serious: Yes (Hospitalization)
  Sender: FDA-Public Use
  Company Number: KR-SANOFI-AVENTIS-200921058GDDC

PATIENT
  Age: 66 Year
  Sex: Female
  Weight: 54.7 kg

DRUGS (11)
  1. DOCETAXEL [Suspect]
     Indication: NON-SMALL CELL LUNG CANCER
     Route: 042
     Dates: start: 20090910, end: 20090917
  2. CISPLATIN [Suspect]
     Indication: NON-SMALL CELL LUNG CANCER
     Route: 042
     Dates: start: 20090910, end: 20090917
  3. OXYCODONE [Concomitant]
  4. MEGESTROL ACETATE [Concomitant]
  5. REBAMIPIDE [Concomitant]
  6. CODEINE PHOSPHATE [Concomitant]
  7. HALOPERIDOL [Concomitant]
  8. LORAZEPAM [Concomitant]
  9. FUROSEMIDE [Concomitant]
     Indication: PREMEDICATION
  10. DEXAMETHASONE [Concomitant]
     Indication: PREMEDICATION
  11. RAMOSETRON [Concomitant]
     Indication: PREMEDICATION

REACTIONS (7)
  - Diarrhoea [Recovered/Resolved]
  - Vomiting [Recovered/Resolved]
  - Vocal cord paralysis [Recovered/Resolved]
  - Headache [Recovered/Resolved]
  - Dizziness [Recovered/Resolved]
  - Nausea [Recovered/Resolved]
  - Vomiting [Recovered/Resolved]
